FAERS Safety Report 22202218 (Version 2)
Quarter: 2023Q2

REPORT INFORMATION
  Report Type: Spontaneous
  Country: CN (occurrence: CN)
  Receive Date: 20230412
  Receipt Date: 20230418
  Transmission Date: 20230721
  Serious: Yes (Other)
  Sender: FDA-Public Use
  Company Number: CN-002147023-NVSC2023CN082518

PATIENT
  Age: 58 Year
  Sex: Male
  Weight: 50 kg

DRUGS (2)
  1. TRAMETINIB [Suspect]
     Active Substance: TRAMETINIB
     Indication: Lung neoplasm malignant
     Dosage: 2 MG, QD
     Route: 048
     Dates: start: 20230301, end: 20230318
  2. DABRAFENIB [Suspect]
     Active Substance: DABRAFENIB
     Indication: Lung neoplasm malignant
     Dosage: 75 MG, BID (TABLET)
     Route: 048
     Dates: start: 20230301, end: 20230318

REACTIONS (3)
  - Gait disturbance [Unknown]
  - Asthenia [Unknown]
  - Myalgia [Not Recovered/Not Resolved]

NARRATIVE: CASE EVENT DATE: 20230318
